FAERS Safety Report 9920457 (Version 1)
Quarter: 2014Q1

REPORT INFORMATION
  Report Type: Spontaneous
  Country: US (occurrence: US)
  Receive Date: 20140224
  Receipt Date: 20140224
  Transmission Date: 20141002
  Serious: Yes (Other)
  Sender: FDA-Public Use
  Company Number: US-GILEAD-2014-0095019

PATIENT
  Sex: Male

DRUGS (1)
  1. HEPSERA [Suspect]
     Indication: HEPATITIS B
     Dosage: 10 MG, UNK
     Route: 065
     Dates: start: 2000

REACTIONS (2)
  - Drug ineffective [Unknown]
  - Hepatitis B [Unknown]
